FAERS Safety Report 9996933 (Version 1)
Quarter: 2014Q1

REPORT INFORMATION
  Report Type: Spontaneous
  Country: US (occurrence: None)
  Receive Date: 20140218
  Receipt Date: 20140218
  Transmission Date: 20141002
  Serious: Yes (Other)
  Sender: FDA-Public Use
  Company Number: 1000052163

PATIENT
  Age: 55 Year
  Sex: Female

DRUGS (13)
  1. VIIBRYD [Suspect]
     Indication: DEPRESSION
     Route: 048
     Dates: start: 201311, end: 201311
  2. VIIBRYD [Suspect]
     Indication: DEPRESSION
     Route: 048
     Dates: start: 201311, end: 20131201
  3. ZOLOFT (SERTRALINE HYDROCHLORIDE) (SERTRALINE HYDROCHLORIDE) [Concomitant]
  4. REMERON (MIRTAZAPINE) (MIRTAZAPINE) [Concomitant]
  5. SEROQUEL (QUETIAPINE FUMARATE) (QUETIAPINE FUMARATE) [Concomitant]
  6. XANAX (ALPRAZOLAM) (ALPRAZOLAM) [Concomitant]
  7. GEODON (ZIPRASIDONE) (ZIPRASIDONE) [Concomitant]
  8. GABAPENTIN (GABAPENTIN) (GABAPENTIN) [Concomitant]
  9. INSULIN (INSULIN) (INSULIN) [Concomitant]
  10. LIPITOR (ATORVASTATIN CALCIUM) (ATORVASTATIN CALCIUM) [Concomitant]
  11. PROTONIX (PANTOPRAZOLE SODIUM SESQUIHYDRATE) (PANTOPRAZOLE SODIUM SESQUIHYDRATE) [Concomitant]
  12. METOPROLOL (METOPROLOL) (METOPROLOL) [Concomitant]
  13. DOXYCYCLINE (DOXYCYCLINE) (DOXYCYCLINE) [Concomitant]

REACTIONS (2)
  - Muscle tone disorder [None]
  - Fall [None]
